FAERS Safety Report 7521232-X (Version None)
Quarter: 2011Q2

REPORT INFORMATION
  Report Type: 
  Country: None (occurrence: None)
  Receive Date: 20110603
  Receipt Date: 20101210
  Transmission Date: 20111010
  Serious: Yes (Hospitalization)
  Sender: FDA-Public Use
  Company Number: US-BAYER-201024302NA

PATIENT
  Age: 74 Year
  Sex: Female

DRUGS (12)
  1. CISPLATIN [Suspect]
     Indication: GALLBLADDER CANCER METASTATIC
     Dates: start: 20100507
  2. SORAFENIB (RAF KINASE INHIBITOR) [Suspect]
     Dosage: 200 MG, QD
     Route: 048
     Dates: start: 20100608
  3. SORAFENIB (RAF KINASE INHIBITOR) [Suspect]
  4. SORAFENIB (RAF KINASE INHIBITOR) [Suspect]
     Dosage: 400 MG, QD
  5. SORAFENIB (RAF KINASE INHIBITOR) [Suspect]
     Dosage: UNK
  6. CISPLATIN [Suspect]
     Dates: start: 20100608
  7. GEMCITABINE [Suspect]
     Indication: GALLBLADDER CANCER METASTATIC
     Dates: start: 20100507
  8. GEMCITABINE [Suspect]
     Dates: start: 20100608
  9. SORAFENIB (RAF KINASE INHIBITOR) [Suspect]
     Indication: GALLBLADDER CANCER METASTATIC
     Dates: start: 20100507
  10. NEUPOGEN [Concomitant]
  11. PROCRIT [Concomitant]
     Dosage: 1 U, UNK
  12. PROCRIT [Concomitant]

REACTIONS (10)
  - ABDOMINAL PAIN [None]
  - CHILLS [None]
  - PANCYTOPENIA [None]
  - ANAEMIA [None]
  - NEUTROPENIA [None]
  - FATIGUE [None]
  - PYREXIA [None]
  - HEADACHE [None]
  - FEBRILE NEUTROPENIA [None]
  - NECK PAIN [None]
